FAERS Safety Report 7200507-8 (Version None)
Quarter: 2010Q4

REPORT INFORMATION
  Report Type: 
  Country: None (occurrence: None)
  Receive Date: 20101228
  Receipt Date: 20101222
  Transmission Date: 20110411
  Serious: Yes (Hospitalization, Other)
  Sender: FDA-Public Use
  Company Number: CA-PFIZER INC-2009158771

PATIENT
  Age: 34 Year
  Sex: Male

DRUGS (3)
  1. CELEBREX [Suspect]
     Indication: ARTERIAL OCCLUSIVE DISEASE
     Dosage: 400 MG, 2X/DAY
     Route: 048
     Dates: start: 20030901, end: 20040801
  2. PERCOCET [Suspect]
     Indication: PAIN
     Dosage: UNK
     Dates: start: 20040101
  3. OXYCODONE [Suspect]
     Indication: PAIN
     Dosage: UNK
     Dates: start: 20040101

REACTIONS (19)
  - ABDOMINAL PAIN [None]
  - ANGER [None]
  - ARTERIAL OCCLUSIVE DISEASE [None]
  - CHEST PAIN [None]
  - DRUG DEPENDENCE [None]
  - FEMORAL ARTERY OCCLUSION [None]
  - FINGER AMPUTATION [None]
  - FRUSTRATION [None]
  - GANGRENE [None]
  - INFECTION [None]
  - ISCHAEMIA [None]
  - MUSCLE SPASMS [None]
  - MUSCULAR WEAKNESS [None]
  - PAIN [None]
  - PAIN IN EXTREMITY [None]
  - SUICIDAL IDEATION [None]
  - TOE AMPUTATION [None]
  - VENOUS INJURY [None]
  - VOMITING [None]
